FAERS Safety Report 8286505-4 (Version None)
Quarter: 2012Q2

REPORT INFORMATION
  Report Type: 
  Country: None (occurrence: None)
  Receive Date: 20120411
  Receipt Date: 20120411
  Transmission Date: 20120825
  Serious: Yes (Disabling, Other)
  Sender: FDA-Public Use
  Company Number: None

PATIENT
  Age: 73 Year
  Sex: Female
  Weight: 76.2043 kg

DRUGS (1)
  1. RISEDRONATE SODIUM [Suspect]
     Indication: ARTHRITIS
     Dosage: 150 MG 1-MONTH ORAL
     Route: 048
     Dates: start: 20120301

REACTIONS (4)
  - FEELING ABNORMAL [None]
  - ASTHENIA [None]
  - MYALGIA [None]
  - MOBILITY DECREASED [None]
